FAERS Safety Report 19661874 (Version 3)
Quarter: 2022Q1

REPORT INFORMATION
  Report Type: Report from Study
  Country: CA (occurrence: CA)
  Receive Date: 20210805
  Receipt Date: 20220224
  Transmission Date: 20220423
  Serious: Yes (Hospitalization, Other)
  Sender: FDA-Public Use
  Company Number: CA-JNJFOC-20210764057

PATIENT
  Age: 68 Year
  Sex: Male
  Weight: 108.9 kg

DRUGS (1)
  1. REMICADE [Suspect]
     Active Substance: INFLIXIMAB
     Indication: Crohn^s disease
     Dosage: 10 MG/KG
     Route: 042
     Dates: start: 20111206

REACTIONS (8)
  - Clostridium difficile infection [Unknown]
  - Campylobacter infection [Unknown]
  - Food poisoning [Unknown]
  - Eye haematoma [Recovered/Resolved]
  - Angina unstable [Not Recovered/Not Resolved]
  - Petechiae [Unknown]
  - Eye oedema [Recovered/Resolved]
  - Dehydration [Unknown]

NARRATIVE: CASE EVENT DATE: 20210717
